FAERS Safety Report 25776739 (Version 1)
Quarter: 2025Q3

REPORT INFORMATION
  Report Type: Spontaneous
  Country: CN (occurrence: CN)
  Receive Date: 20250909
  Receipt Date: 20250909
  Transmission Date: 20251020
  Serious: Yes (Other)
  Sender: SANOFI AVENTIS
  Company Number: CN-DialogSolutions-SAAVPROD-PI817329-C1

PATIENT
  Age: 64 Year
  Sex: Male

DRUGS (2)
  1. DUPILUMAB [Suspect]
     Active Substance: DUPILUMAB
     Indication: Dermatitis atopic
  2. DUPILUMAB [Suspect]
     Active Substance: DUPILUMAB
     Dosage: 300 MG, QOW

REACTIONS (10)
  - Lichenoid keratosis [Recovering/Resolving]
  - Drug eruption [Recovering/Resolving]
  - Erythema [Recovering/Resolving]
  - Skin exfoliation [Recovering/Resolving]
  - Dermatitis exfoliative generalised [Recovering/Resolving]
  - Skin hyperpigmentation [Recovering/Resolving]
  - Papule [Recovering/Resolving]
  - Parakeratosis [Recovering/Resolving]
  - Necrosis [Recovering/Resolving]
  - Paradoxical drug reaction [Recovering/Resolving]
